FAERS Safety Report 7775958-3 (Version None)
Quarter: 2011Q3

REPORT INFORMATION
  Report Type: 
  Country: None (occurrence: None)
  Receive Date: 20110923
  Receipt Date: 20110919
  Transmission Date: 20111222
  Serious: Yes (Other)
  Sender: FDA-Public Use
  Company Number: IE-MERCK-1108GBR00135

PATIENT
  Age: 80 Year
  Sex: Female
  Weight: 74 kg

DRUGS (9)
  1. SINGULAIR [Suspect]
     Indication: ASTHMA
     Route: 048
     Dates: start: 20110607, end: 20110805
  2. ALENDRONATE SODIUM AND CHOLECALCIFEROL [Concomitant]
     Indication: OSTEOPOROSIS
     Route: 048
     Dates: start: 20040901
  3. METFORMIN HYDROCHLORIDE [Concomitant]
     Indication: DIABETES MELLITUS
     Route: 048
     Dates: start: 20081101
  4. ACETAMINOPHEN AND CAFFEINE AND CODEINE PHOSPHATE [Concomitant]
     Route: 065
  5. SIMVASTATIN [Concomitant]
     Route: 065
  6. BECLOMETHASONE DIPROPIONATE [Concomitant]
     Indication: ASTHMA
     Route: 048
     Dates: start: 20060701
  7. RABEPRAZOLE SODIUM [Concomitant]
     Route: 065
  8. IPRATROPIUM BROMIDE [Concomitant]
     Indication: ASTHMA
     Route: 055
     Dates: start: 20090301
  9. ASPIRIN [Concomitant]
     Indication: DIABETES MELLITUS
     Route: 048
     Dates: start: 20020901

REACTIONS (2)
  - DECREASED APPETITE [None]
  - DEPRESSION [None]
